FAERS Safety Report 19605078 (Version 3)
Quarter: 2022Q1

REPORT INFORMATION
  Report Type: Spontaneous
  Country: CO (occurrence: CO)
  Receive Date: 20210723
  Receipt Date: 20220221
  Transmission Date: 20220423
  Serious: Yes (Other)
  Sender: FDA-Public Use
  Company Number: CO-AMGEN-COLSP2021111090

PATIENT
  Age: 78 Year
  Sex: Female
  Weight: 44 kg

DRUGS (6)
  1. MVASI [Suspect]
     Active Substance: BEVACIZUMAB-AWWB
     Indication: Rectal cancer
     Dosage: 220 MILLIGRAM, Q2WK
     Route: 065
     Dates: start: 20210524
  2. MVASI [Suspect]
     Active Substance: BEVACIZUMAB-AWWB
     Indication: Colon cancer
     Dosage: 220 MILLIGRAM, Q2WK
     Route: 065
     Dates: end: 20210721
  3. LEUCOVORIN CALCIUM [Concomitant]
     Active Substance: LEUCOVORIN CALCIUM
     Indication: Rectal cancer
     Dosage: 520 MILLIGRAM, Q2WK
     Route: 065
     Dates: start: 20210524, end: 20210721
  4. LEUCOVORIN CALCIUM [Concomitant]
     Active Substance: LEUCOVORIN CALCIUM
     Indication: Colon cancer
  5. FLUOROURACIL [Concomitant]
     Active Substance: FLUOROURACIL
     Indication: Rectal cancer
     Dosage: 2080 MILLIGRAM (EVERY 15 DAYS)
     Route: 065
     Dates: start: 20210524
  6. FLUOROURACIL [Concomitant]
     Active Substance: FLUOROURACIL
     Indication: Colon cancer
     Dosage: 2080 MILLIGRAM (EVERY 15 DAYS)
     Route: 065
     Dates: end: 20210721

REACTIONS (4)
  - Adenocarcinoma of colon [Unknown]
  - Diarrhoea [Not Recovered/Not Resolved]
  - Atelectasis [Unknown]
  - Radiculopathy [Unknown]

NARRATIVE: CASE EVENT DATE: 20210713
